FAERS Safety Report 19318532 (Version 1)
Quarter: 2021Q2

REPORT INFORMATION
  Report Type: Spontaneous
  Country: US (occurrence: US)
  Receive Date: 20210527
  Receipt Date: 20210527
  Transmission Date: 20210717
  Serious: Yes (Other)
  Sender: FDA-Public Use
  Company Number: US-ABBVIE-21K-163-3916867-00

PATIENT
  Age: 22 Year
  Sex: Female

DRUGS (1)
  1. ORILISSA [Suspect]
     Active Substance: ELAGOLIX SODIUM
     Indication: PRODUCT USED FOR UNKNOWN INDICATION
     Route: 048

REACTIONS (10)
  - Endometriosis [Unknown]
  - Adenomyosis [Unknown]
  - Uterine hypertonus [Unknown]
  - Artificial menopause [Unknown]
  - Polycystic ovaries [Unknown]
  - Inadequate diet [Unknown]
  - Weight loss poor [Unknown]
  - Surgery [Unknown]
  - Pain [Recovered/Resolved]
  - Female reproductive tract disorder [Unknown]
